FAERS Safety Report 21075463 (Version 1)
Quarter: 2022Q3

REPORT INFORMATION
  Report Type: Other
  Country: US (occurrence: None)
  Receive Date: 20220713
  Receipt Date: 20220713
  Transmission Date: 20221027
  Serious: Yes (Death)
  Sender: FDA-Public Use
  Company Number: US-ROCHE-3118099

PATIENT
  Age: 62 Year
  Sex: Male

DRUGS (1)
  1. OCREVUS [Suspect]
     Active Substance: OCRELIZUMAB
     Indication: Primary progressive multiple sclerosis
     Route: 042

REACTIONS (1)
  - Death [Fatal]

NARRATIVE: CASE EVENT DATE: 20220613
